FAERS Safety Report 24740951 (Version 1)
Quarter: 2024Q4

REPORT INFORMATION
  Report Type: Spontaneous
  Country: TH (occurrence: TH)
  Receive Date: 20241217
  Receipt Date: 20241217
  Transmission Date: 20250115
  Serious: Yes (Other)
  Sender: ASTELLAS
  Company Number: TH-ASTELLAS-2024-AER-024639

PATIENT
  Age: 43 Year
  Sex: Male
  Weight: 94 kg

DRUGS (5)
  1. TACROLIMUS [Suspect]
     Active Substance: TACROLIMUS
     Indication: Renal transplant
     Route: 065
     Dates: start: 2024, end: 20240619
  2. METHYLPREDNISOLONE [Concomitant]
     Active Substance: METHYLPREDNISOLONE
     Indication: Renal transplant
     Route: 065
     Dates: start: 2024
  3. BASILIXIMAB [Concomitant]
     Active Substance: BASILIXIMAB
     Indication: Renal transplant
     Route: 065
     Dates: start: 2024
  4. MYCOPHENOLATE MOFETIL [Concomitant]
     Active Substance: MYCOPHENOLATE MOFETIL
     Indication: Renal transplant
     Route: 065
     Dates: start: 2024
  5. PREDNISOLONE [Concomitant]
     Active Substance: PREDNISOLONE
     Indication: Renal transplant
     Route: 065
     Dates: start: 2024

REACTIONS (4)
  - Thrombotic microangiopathy [Unknown]
  - Chronic allograft nephropathy [Unknown]
  - Hypertensive angiopathy [Unknown]
  - Reperfusion injury [Unknown]

NARRATIVE: CASE EVENT DATE: 20240503
